FAERS Safety Report 7627359-6 (Version None)
Quarter: 2011Q3

REPORT INFORMATION
  Report Type: 
  Country: None (occurrence: None)
  Receive Date: 20110721
  Receipt Date: 20110711
  Transmission Date: 20111222
  Serious: Yes (Hospitalization)
  Sender: FDA-Public Use
  Company Number: ES-ELI_LILLY_AND_COMPANY-ES201104002088

PATIENT
  Sex: Female
  Weight: 43 kg

DRUGS (5)
  1. DUSPATALIN [Concomitant]
     Indication: GASTROINTESTINAL DISORDER
     Dosage: UNK, EVERY 12 HOURS
     Route: 048
  2. ASPIRIN [Concomitant]
     Indication: THROMBOSIS
     Dosage: 300 MG, QD
     Route: 048
  3. LEXATIN [Concomitant]
     Indication: ANXIETY
     Dosage: UNK, PRN
     Route: 048
  4. FORTEO [Suspect]
     Indication: OSTEOPOROSIS
     Dosage: 20 UG, QD
     Route: 058
     Dates: start: 20100514
  5. CORTISONE ACETATE [Concomitant]
     Indication: RASH
     Route: 048

REACTIONS (2)
  - RASH [None]
  - GASTROINTESTINAL HYPOMOTILITY [None]
